FAERS Safety Report 16150432 (Version 2)
Quarter: 2019Q2

REPORT INFORMATION
  Report Type: Report from Study
  Country: CA (occurrence: CA)
  Receive Date: 20190402
  Receipt Date: 20190515
  Transmission Date: 20190711
  Serious: Yes (Death, Hospitalization)
  Sender: FDA-Public Use
  Company Number: CA-ACTELION-A-NJ2019-188353

PATIENT
  Sex: Male

DRUGS (12)
  1. ATORVASTATIN [Concomitant]
     Active Substance: ATORVASTATIN
  2. OMEGA 3 [Concomitant]
     Active Substance: OMEGA-3 FATTY ACIDS
  3. FUROSEMIDE. [Concomitant]
     Active Substance: FUROSEMIDE
  4. VITAMIN B [Concomitant]
     Active Substance: VITAMIN B
  5. TRACLEER [Suspect]
     Active Substance: BOSENTAN
     Indication: PULMONARY ARTERIAL HYPERTENSION
     Dosage: 62.5 MG
     Route: 048
     Dates: start: 20171003
  6. SOLIFENACIN SANDOZ [Concomitant]
     Active Substance: SOLIFENACIN
  7. TAMSULOSIN [Concomitant]
     Active Substance: TAMSULOSIN
  8. SENOKOT [Concomitant]
     Active Substance: SENNOSIDES
  9. METAMUCIL [Concomitant]
     Active Substance: PLANTAGO SEED
  10. WARFARIN [Concomitant]
     Active Substance: WARFARIN
  11. ADVAIR HFA [Concomitant]
     Active Substance: FLUTICASONE PROPIONATE\SALMETEROL XINAFOATE
  12. RAMIPRIL. [Concomitant]
     Active Substance: RAMIPRIL

REACTIONS (2)
  - Hospitalisation [Unknown]
  - Death [Fatal]
